FAERS Safety Report 13727687 (Version 1)
Quarter: 2017Q3

REPORT INFORMATION
  Report Type: Spontaneous
  Country: US (occurrence: US)
  Receive Date: 20170707
  Receipt Date: 20170707
  Transmission Date: 20171127
  Serious: No
  Sender: FDA-Public Use
  Company Number: US-PFIZER INC-2017289214

PATIENT
  Age: 59 Year
  Sex: Female

DRUGS (1)
  1. SUTENT [Suspect]
     Active Substance: SUNITINIB MALATE
     Dosage: 50 MG, CYCLIC(DAILY FOR 14 DAYS THEN 7 DAYS OFF- REPEAT)
     Route: 048

REACTIONS (3)
  - Hypoaesthesia oral [Unknown]
  - Depressed mood [Unknown]
  - Glossitis [Unknown]

NARRATIVE: CASE EVENT DATE: 20170630
